FAERS Safety Report 10092980 (Version 1)
Quarter: 2014Q2

REPORT INFORMATION
  Report Type: Spontaneous
  Country: US (occurrence: US)
  Receive Date: 20140421
  Receipt Date: 20140421
  Transmission Date: 20141212
  Serious: No
  Sender: FDA-Public Use
  Company Number: US-SANOFI-AVENTIS-2013SA092000

PATIENT
  Age: 79 Year
  Sex: Female

DRUGS (1)
  1. ALLEGRA [Suspect]
     Route: 048

REACTIONS (4)
  - Palpitations [Unknown]
  - Hypotension [Unknown]
  - Weight decreased [Unknown]
  - Drug ineffective [Unknown]
